FAERS Safety Report 8490255-9 (Version None)
Quarter: 2012Q3

REPORT INFORMATION
  Report Type: 
  Country: None (occurrence: None)
  Receive Date: 20120705
  Receipt Date: 20120209
  Transmission Date: 20120928
  Serious: No
  Sender: FDA-Public Use
  Company Number: -BAUSCH-2012BL001038

PATIENT
  Sex: Female

DRUGS (1)
  1. OPCON-A [Suspect]

REACTIONS (2)
  - EXPIRED DRUG ADMINISTERED [None]
  - EYE IRRITATION [None]
